FAERS Safety Report 4870038-9 (Version None)
Quarter: 2005Q4

REPORT INFORMATION
  Report Type: 
  Country: None (occurrence: None)
  Receive Date: 20051223
  Receipt Date: 20051216
  Transmission Date: 20060501
  Serious: Yes (Hospitalization, Other)
  Sender: FDA-Public Use
  Company Number: KII-2005-0020291

PATIENT
  Age: 79 Year
  Sex: Male

DRUGS (4)
  1. OXYCONTIN [Suspect]
     Dosage: ORAL
     Route: 048
  2. VALPROIC ACID [Suspect]
     Dosage: ORAL
     Route: 048
  3. OTHER HYPNOTICS AND SEDATIVES [Suspect]
     Dosage: ORAL
     Route: 048
  4. DECONGESTANT [Suspect]
     Dosage: ORAL
     Route: 048

REACTIONS (7)
  - BODY TEMPERATURE DECREASED [None]
  - HEADACHE [None]
  - HEART RATE INCREASED [None]
  - LOBAR PNEUMONIA [None]
  - LOSS OF CONSCIOUSNESS [None]
  - PUPIL FIXED [None]
  - RESPIRATION ABNORMAL [None]
